FAERS Safety Report 9168482 (Version 1)
Quarter: 2013Q1

REPORT INFORMATION
  Report Type: Spontaneous
  Country: FR (occurrence: None)
  Receive Date: 20130307
  Receipt Date: 20130307
  Transmission Date: 20140127
  Serious: Yes (Hospitalization)
  Sender: FDA-Public Use
  Company Number: 2013-03529

PATIENT
  Age: 59 Year
  Sex: Male

DRUGS (16)
  1. CARBOPLATIN (WATSON LABORATORIES) (CARBOPLATIN) UNK, UNKUNK? [Suspect]
     Indication: BRONCHIAL CARCINOMA
     Route: 042
     Dates: start: 20120827, end: 20120827
  2. ALIMTA [Suspect]
     Indication: BRONCHIAL CARCINOMA
     Route: 042
     Dates: start: 20120827, end: 20120827
  3. VITAMIN B12? /00056201/ (CYANOCOBALAMINI) [Concomitant]
  4. SPECIAFOLDINE (FOLIC ACID) [Concomitant]
  5. GRANISETRON (GRANISETRON) [Concomitant]
  6. METHYLPREDNISOLONE (METHYLPREDNISOLONE) [Concomitant]
  7. CHLORPROMAZINE (CHLORPROMAZINE) [Concomitant]
  8. CLORAZEPATE (CLORAZEPATE DIPOTASSIUM) [Concomitant]
  9. ARANESP (DARBEPOETIN ALFA) [Concomitant]
  10. VITAMIN C?/00008001/ (ASCORBIC ACID) [Concomitant]
  11. NONAN (ELECTROLYTES NOS) [Concomitant]
  12. CERNEVIT ?/01027001/ (VITAMINS NOS) [Concomitant]
  13. BRICANYL (TERBUTALINE SULFATE) [Concomitant]
  14. ZOMETA (ZOLEDRONIC ACID) [Concomitant]
  15. TARDYFERON (FERROUS SULFATE) [Concomitant]
  16. EFFERALGAN CODEIN (CODEINE PHOSPHATE, PARACETAMOL) [Concomitant]

REACTIONS (1)
  - Urticaria [None]
